FAERS Safety Report 17764688 (Version 2)
Quarter: 2020Q2

REPORT INFORMATION
  Report Type: Spontaneous
  Country: IT (occurrence: IT)
  Receive Date: 20200511
  Receipt Date: 20200521
  Transmission Date: 20200714
  Serious: Yes (Hospitalization)
  Sender: FDA-Public Use
  Company Number: IT-SUN PHARMACEUTICAL INDUSTRIES LTD-2020RR-246436

PATIENT
  Age: 87 Year
  Sex: Female

DRUGS (3)
  1. SIMVASTATIN. [Suspect]
     Active Substance: SIMVASTATIN
     Indication: INTENTIONAL SELF-INJURY
     Dosage: UNK
     Route: 048
     Dates: start: 20200408, end: 20200408
  2. LORAZEPAM. [Suspect]
     Active Substance: LORAZEPAM
     Indication: INTENTIONAL SELF-INJURY
     Dosage: 100 MILLIGRAMS, IN TOTAL
     Route: 048
     Dates: start: 20200408, end: 20200408
  3. ELIQUIS [Suspect]
     Active Substance: APIXABAN
     Indication: INTENTIONAL SELF-INJURY
     Dosage: 15 MILLIGRAMS, IN TOTAL
     Route: 048
     Dates: start: 20200408, end: 20200408

REACTIONS (3)
  - Drug abuse [Unknown]
  - Palpitations [Unknown]
  - Intentional self-injury [Unknown]

NARRATIVE: CASE EVENT DATE: 20200408
